FAERS Safety Report 4318130-1 (Version None)
Quarter: 2004Q1

REPORT INFORMATION
  Report Type: 
  Country: None (occurrence: None)
  Receive Date: 20040317
  Receipt Date: 20030617
  Transmission Date: 20041129
  Serious: Yes (Other)
  Sender: FDA-Public Use
  Company Number: US-GLAXOSMITHKLINE-A0413827A

PATIENT
  Sex: Male

DRUGS (9)
  1. AVANDIA [Suspect]
     Indication: DIABETES MELLITUS NON-INSULIN-DEPENDENT
     Route: 048
     Dates: start: 20000623
  2. SYNTHROID [Concomitant]
     Dosage: .15MG PER DAY
     Route: 048
  3. MESTINON [Concomitant]
     Dosage: 60MG THREE TIMES PER DAY
     Route: 048
  4. HUMULIN R [Concomitant]
     Indication: DIABETES MELLITUS
     Route: 058
  5. HUMULIN N [Concomitant]
     Indication: DIABETES MELLITUS
     Route: 058
  6. PRAVACHOL [Concomitant]
     Dosage: 20MG AT NIGHT
     Route: 048
  7. PROAMATINE [Concomitant]
     Dosage: 10MG THREE TIMES PER DAY
     Route: 048
  8. PREDNISOLONE [Concomitant]
     Dosage: 1DROP FOUR TIMES PER DAY
     Route: 047
  9. ELAVIL [Concomitant]
     Dosage: 25MG AT NIGHT
     Route: 048

REACTIONS (1)
  - HEART INJURY [None]
